FAERS Safety Report 9572238 (Version 1)
Quarter: 2013Q4

REPORT INFORMATION
  Report Type: Spontaneous
  Country: US (occurrence: US)
  Receive Date: 20131001
  Receipt Date: 20131001
  Transmission Date: 20140711
  Serious: No
  Sender: FDA-Public Use
  Company Number: US-BIOGENIDEC-2013BI068337

PATIENT
  Age: 43 Year
  Sex: Female
  Weight: 112 kg

DRUGS (10)
  1. TECFIDERA [Suspect]
     Indication: MULTIPLE SCLEROSIS
     Route: 048
     Dates: start: 20130714
  2. TECFIDERA [Suspect]
     Indication: MULTIPLE SCLEROSIS
     Route: 048
  3. VALTREX [Concomitant]
  4. CYMBALTA [Concomitant]
  5. KLONOPIN [Concomitant]
  6. NUVIGIL [Concomitant]
  7. PANTOPRAZOLE [Concomitant]
  8. MIDOL [Concomitant]
  9. MOTRIN [Concomitant]
  10. MUCINEX [Concomitant]

REACTIONS (2)
  - Headache [Unknown]
  - Flushing [Unknown]
